FAERS Safety Report 13880261 (Version 1)
Quarter: 2017Q3

REPORT INFORMATION
  Report Type: Spontaneous
  Country: FR (occurrence: FR)
  Receive Date: 20170818
  Receipt Date: 20170818
  Transmission Date: 20171127
  Serious: Yes (Hospitalization)
  Sender: FDA-Public Use
  Company Number: FR-ORION CORPORATION ORION PHARMA-TREX2017-2516

PATIENT
  Age: 74 Year
  Sex: Male

DRUGS (10)
  1. CHIBROPROSCAR [Concomitant]
     Indication: URINARY BLADDER POLYP
     Route: 048
     Dates: start: 201608
  2. KARDEGIC [Concomitant]
     Active Substance: ASPIRIN LYSINE
     Indication: ARTERIAL DISORDER
     Route: 048
     Dates: start: 201309
  3. PNEUMO 23 [Concomitant]
     Active Substance: PNEUMOCOCCAL VACCINE, POLYVALENT 23
     Route: 065
     Dates: start: 20170210, end: 20170210
  4. IMETH [Suspect]
     Active Substance: METHOTREXATE SODIUM
     Indication: RHEUMATOID ARTHRITIS
     Route: 048
     Dates: start: 20170110, end: 20170210
  5. UVEDOSE [Suspect]
     Active Substance: CHOLECALCIFEROL
     Indication: VITAMIN SUPPLEMENTATION
     Route: 048
     Dates: start: 20161213
  6. CORTANCYL [Concomitant]
     Active Substance: PREDNISONE
     Indication: RHEUMATOID ARTHRITIS
     Dosage: TAPERING DOSES FRON DEC-2016
     Route: 048
     Dates: start: 20170513, end: 20170607
  7. OMEPRAZOLE. [Concomitant]
     Active Substance: OMEPRAZOLE
     Indication: GASTROOESOPHAGEAL REFLUX DISEASE
     Route: 048
  8. IMETH [Suspect]
     Active Substance: METHOTREXATE SODIUM
     Route: 048
     Dates: start: 20170211
  9. PREVENAR [Concomitant]
     Active Substance: PNEUMOCOCCAL 7-VALENT CONJUGATE VACCINE (DIPHTHERIA CRM197 PROTEIN)
     Route: 065
     Dates: start: 20161213, end: 20161213
  10. SPECIAFOLDINE [Suspect]
     Active Substance: FOLIC ACID
     Route: 048
     Dates: start: 20170110

REACTIONS (2)
  - Vertigo [Not Recovered/Not Resolved]
  - Sudden hearing loss [Not Recovered/Not Resolved]

NARRATIVE: CASE EVENT DATE: 20170607
